FAERS Safety Report 8237417-3 (Version None)
Quarter: 2012Q1

REPORT INFORMATION
  Report Type: 
  Country: None (occurrence: None)
  Receive Date: 20120327
  Receipt Date: 20120315
  Transmission Date: 20120608
  Serious: Yes (Hospitalization)
  Sender: FDA-Public Use
  Company Number: SG-PFIZER INC-2012070260

PATIENT
  Age: 63 Year
  Sex: Female
  Weight: 45 kg

DRUGS (6)
  1. TRAMADOL [Concomitant]
     Indication: HEADACHE
     Dosage: 50 MG, AS NEEDED
     Route: 048
     Dates: start: 20120220
  2. FAMOTIDINE [Concomitant]
     Indication: PROPHYLAXIS
     Dosage: 20 MG, 1X/DAY
     Route: 048
     Dates: start: 20120301
  3. KEPPRA [Concomitant]
     Indication: PARTIAL SEIZURES
     Dosage: 250 MG, 2X/DAY
     Route: 048
     Dates: start: 20120221
  4. CARBOPLATIN [Suspect]
     Indication: NON-SMALL CELL LUNG CANCER
     Dosage: 440 MG, EVERY 3 WEEKS
     Route: 042
     Dates: start: 20111230
  5. PEMETREXED [Suspect]
     Indication: NON-SMALL CELL LUNG CANCER
     Dosage: 720 MG, EVERY 3 WEEKS
     Route: 042
     Dates: start: 20111230
  6. TRAMADOL [Concomitant]
     Indication: PAIN

REACTIONS (3)
  - DIZZINESS [None]
  - ASTHENIA [None]
  - HEADACHE [None]
